FAERS Safety Report 15785596 (Version 1)
Quarter: 2019Q1

REPORT INFORMATION
  Report Type: Spontaneous
  Country: CN (occurrence: CN)
  Receive Date: 20190103
  Receipt Date: 20190103
  Transmission Date: 20190417
  Serious: Yes (Hospitalization, Other)
  Sender: FDA-Public Use
  Company Number: CN-BAYER-2018-245941

PATIENT
  Age: 54 Year
  Sex: Male
  Weight: 55.5 kg

DRUGS (3)
  1. MEPEM [MEROPENEM] [Suspect]
     Active Substance: MEROPENEM
     Indication: INFECTION
     Dosage: 1 G, QID
     Route: 041
     Dates: start: 20180911, end: 20180912
  2. SODIUM CHLORIDE 0.9% [Concomitant]
     Active Substance: SODIUM CHLORIDE
  3. AVELOX [Suspect]
     Active Substance: MOXIFLOXACIN HYDROCHLORIDE
     Indication: INFECTION
     Dosage: 0.4 G, QD
     Route: 041
     Dates: start: 20180911, end: 20180912

REACTIONS (3)
  - Delirium [Recovered/Resolved]
  - Irritability [Recovered/Resolved]
  - Language disorder [Recovered/Resolved]

NARRATIVE: CASE EVENT DATE: 20180912
